FAERS Safety Report 10227847 (Version 1)
Quarter: 2014Q2

REPORT INFORMATION
  Report Type: Spontaneous
  Country: US (occurrence: US)
  Receive Date: 20140610
  Receipt Date: 20140610
  Transmission Date: 20141212
  Serious: Yes (Life-Threatening)
  Sender: FDA-Public Use
  Company Number: US-SA-2014SA070795

PATIENT
  Age: 49 Year
  Sex: Female

DRUGS (2)
  1. ELOXATIN [Suspect]
     Indication: COLON CANCER
     Route: 065
     Dates: start: 20140519
  2. XELODA [Suspect]
     Indication: COLON CANCER
     Route: 065

REACTIONS (4)
  - Convulsion [Recovered/Resolved]
  - Unresponsive to stimuli [Recovered/Resolved]
  - Paraesthesia [Recovered/Resolved]
  - Hypoaesthesia [Recovered/Resolved]
